FAERS Safety Report 5740014-2 (Version None)
Quarter: 2008Q2

REPORT INFORMATION
  Report Type: 
  Country: None (occurrence: None)
  Receive Date: 20080516
  Receipt Date: 20080516
  Transmission Date: 20081010
  Serious: Yes (Hospitalization)
  Sender: FDA-Public Use
  Company Number: None

PATIENT
  Sex: Male
  Weight: 81.7 kg

DRUGS (1)
  1. HEPARIN SODIUM [Suspect]
     Indication: DIALYSIS
     Dosage: 4000U 1 X IV BOLUS
     Route: 040
     Dates: start: 20080509, end: 20080512

REACTIONS (4)
  - FEELING HOT [None]
  - FLUSHING [None]
  - PULSE ABSENT [None]
  - RESPIRATORY ARREST [None]
